FAERS Safety Report 9087695 (Version 1)
Quarter: 2013Q1

REPORT INFORMATION
  Report Type: Spontaneous
  Country: GB (occurrence: GB)
  Receive Date: 20130201
  Receipt Date: 20130201
  Transmission Date: 20140127
  Serious: Yes (Other)
  Sender: FDA-Public Use
  Company Number: PHHY2013GB007707

PATIENT
  Age: 56 Year
  Sex: Male

DRUGS (8)
  1. OMEPRAZOLE [Concomitant]
     Dosage: 20 MG, UNK
     Route: 048
  2. RAMIPRIL [Concomitant]
     Dosage: 2.5 MG, UNK
     Route: 048
  3. SITAGLIPTIN [Concomitant]
     Dosage: 100 MG, UNK
     Route: 048
  4. CITALOPRAM [Suspect]
     Indication: DEPRESSION
     Dosage: 20 MG, UNK
     Route: 048
  5. METHOTREXATE [Concomitant]
     Indication: RHEUMATOID ARTHRITIS
     Dosage: 10 MG, UNK
     Route: 048
  6. FOLIC ACID [Concomitant]
     Dosage: 5 MG, UNK
     Route: 048
  7. GLICLAZIDE [Concomitant]
     Dosage: 240 MG, (160MG MORNING, 80MG EVENING)
     Route: 048
  8. METFORMIN [Concomitant]
     Dosage: 1000 MG, BID
     Route: 048

REACTIONS (3)
  - Rheumatoid arthritis [Unknown]
  - Palindromic rheumatism [Unknown]
  - Joint swelling [Unknown]
